FAERS Safety Report 8607068-7 (Version None)
Quarter: 2012Q3

REPORT INFORMATION
  Report Type: 
  Country: None (occurrence: None)
  Receive Date: 20120821
  Receipt Date: 20120807
  Transmission Date: 20120928
  Serious: Yes (Hospitalization, Other)
  Sender: FDA-Public Use
  Company Number: TR-PAR PHARMACEUTICAL, INC-2012SCPR004562

PATIENT

DRUGS (2)
  1. OLANZAPINE [Suspect]
     Indication: SCHIZOPHRENIA
     Dosage: 10 MG, / DAY
     Route: 065
  2. OLANZAPINE [Suspect]
     Dosage: 20 MG, / DAY
     Route: 065

REACTIONS (6)
  - RHABDOMYOLYSIS [None]
  - SCHIZOPHRENIA [None]
  - HYPERNATRAEMIA [None]
  - RENAL FAILURE ACUTE [None]
  - NEUROLEPTIC MALIGNANT SYNDROME [None]
  - OLIGODIPSIA [None]
